FAERS Safety Report 25985526 (Version 1)
Quarter: 2025Q4

REPORT INFORMATION
  Report Type: Spontaneous
  Country: US (occurrence: US)
  Receive Date: 20251031
  Receipt Date: 20251031
  Transmission Date: 20260118
  Serious: No
  Sender: MERCK SHARP & DOHME LLC
  Company Number: US-009507513-2344724

PATIENT
  Age: 6 Decade
  Sex: Male

DRUGS (4)
  1. DAPTOMYCIN [Suspect]
     Active Substance: DAPTOMYCIN
     Indication: Diverticulitis
  2. POSACONAZOLE [Suspect]
     Active Substance: POSACONAZOLE
     Indication: Diverticulitis
  3. MEROPENEM [Concomitant]
     Active Substance: MEROPENEM
     Indication: Diverticulitis
  4. ACYCLOVIR [Concomitant]
     Active Substance: ACYCLOVIR
     Indication: Diverticulitis

REACTIONS (1)
  - Product use in unapproved indication [Unknown]
